FAERS Safety Report 15323140 (Version 1)
Quarter: 2018Q3

REPORT INFORMATION
  Report Type: Spontaneous
  Country: US (occurrence: US)
  Receive Date: 20180822
  Receipt Date: 20180822
  Transmission Date: 20181010
  Serious: No
  Sender: FDA-Public Use
  Company Number: None

PATIENT
  Age: 33 Year
  Sex: Female
  Weight: 48.6 kg

DRUGS (3)
  1. CIPROFLOXACIN HYDROCHLOIDE TABLETS GENERIC FOR CIPRO [Suspect]
     Active Substance: CIPROFLOXACIN HYDROCHLORIDE
     Indication: URINARY TRACT INFECTION
     Dosage: ?          QUANTITY:10 TABLET(S);?
     Route: 048
     Dates: start: 20180723, end: 20180724
  2. PROBIOTICS [Concomitant]
     Active Substance: PROBIOTICS NOS
  3. MULTIVITAMIN [Concomitant]
     Active Substance: VITAMINS

REACTIONS (7)
  - Pain in extremity [None]
  - Sensory disturbance [None]
  - Tendon discomfort [None]
  - Dry mouth [None]
  - Paraesthesia [None]
  - Fatigue [None]
  - Tendon pain [None]

NARRATIVE: CASE EVENT DATE: 20180724
